FAERS Safety Report 7763087-4 (Version None)
Quarter: 2011Q3

REPORT INFORMATION
  Report Type: 
  Country: None (occurrence: None)
  Receive Date: 20110920
  Receipt Date: 20100816
  Transmission Date: 20111222
  Serious: No
  Sender: FDA-Public Use
  Company Number: US-BAUSCH-2010BL004603

PATIENT
  Age: 33 Year
  Sex: Female

DRUGS (6)
  1. PRENATAL VITAMINS [Concomitant]
  2. ERYTHROCIN 1% [Suspect]
     Indication: PROPHYLAXIS
     Route: 047
     Dates: start: 20100813, end: 20100814
  3. ACETAMINOPHEN [Concomitant]
  4. LORATADINE [Concomitant]
  5. ERYTHROCIN 1% [Suspect]
     Route: 047
     Dates: start: 20100810, end: 20100811
  6. BENADRYL ^PARKE DAVIS^ /AUT/ [Concomitant]

REACTIONS (13)
  - MATERNAL EXPOSURE DURING PREGNANCY [None]
  - EYELID OEDEMA [None]
  - EYELID PAIN [None]
  - SCLERAL OEDEMA [None]
  - NASAL CONGESTION [None]
  - EYE SWELLING [None]
  - DRUG HYPERSENSITIVITY [None]
  - VAGINAL HAEMORRHAGE [None]
  - OROPHARYNGEAL PAIN [None]
  - MIGRAINE [None]
  - PURULENT DISCHARGE [None]
  - CONJUNCTIVITIS INFECTIVE [None]
  - CONDITION AGGRAVATED [None]
